FAERS Safety Report 5831953-2 (Version None)
Quarter: 2008Q3

REPORT INFORMATION
  Report Type: 
  Country: None (occurrence: None)
  Receive Date: 20080804
  Receipt Date: 20080424
  Transmission Date: 20090109
  Serious: No
  Sender: FDA-Public Use
  Company Number: US-BAYER-200821060NA

PATIENT
  Age: 72 Year
  Sex: Male

DRUGS (6)
  1. LEVITRA [Suspect]
     Indication: DRUG USE FOR UNKNOWN INDICATION
     Route: 048
     Dates: start: 20070401
  2. LEVITRA [Suspect]
     Route: 048
     Dates: start: 20070401
  3. ZOCOR [Concomitant]
  4. PRINIVIL [Concomitant]
  5. LOPRESSOR [Concomitant]
  6. ASPIRIN [Concomitant]

REACTIONS (7)
  - CHEST PAIN [None]
  - CYANOPSIA [None]
  - DRUG USE FOR UNKNOWN INDICATION [None]
  - DYSGEUSIA [None]
  - ERECTILE DYSFUNCTION [None]
  - OESOPHAGEAL PAIN [None]
  - VISUAL IMPAIRMENT [None]
